FAERS Safety Report 5257966-X (Version None)
Quarter: 2007Q1

REPORT INFORMATION
  Report Type: 
  Country: None (occurrence: None)
  Receive Date: 20070307
  Receipt Date: 20061219
  Transmission Date: 20070707
  Serious: No
  Sender: FDA-Public Use
  Company Number: US-GLAXOSMITHKLINE-A0627661A

PATIENT
  Age: 64 Year
  Sex: Female
  Weight: 49.5 kg

DRUGS (8)
  1. REQUIP [Suspect]
     Indication: RESTLESS LEGS SYNDROME
     Dosage: .025MG AT NIGHT
     Route: 048
     Dates: start: 20060101
  2. FOSAMAX [Concomitant]
  3. SINGULAIR [Concomitant]
  4. FAMOTIDINE [Concomitant]
  5. PAROXETINE HCL [Concomitant]
  6. ALBUTEROL [Concomitant]
  7. QVAR 40 [Concomitant]
  8. VAGIFEM [Concomitant]

REACTIONS (2)
  - PHARMACEUTICAL PRODUCT COMPLAINT [None]
  - RESTLESS LEGS SYNDROME [None]
